FAERS Safety Report 7687335-4 (Version None)
Quarter: 2011Q3

REPORT INFORMATION
  Report Type: 
  Country: None (occurrence: None)
  Receive Date: 20110816
  Receipt Date: 20110811
  Transmission Date: 20111222
  Serious: Yes (Hospitalization)
  Sender: FDA-Public Use
  Company Number: US-ABBOTT-11P-163-0845716-00

PATIENT
  Sex: Female
  Weight: 63.56 kg

DRUGS (5)
  1. IBUPROFEN [Concomitant]
     Indication: PAIN
     Dosage: PRN
  2. MULTI-VITAMIN [Concomitant]
     Indication: VITAMIN SUPPLEMENTATION
  3. KEFLEX [Suspect]
     Indication: FURUNCLE
     Dates: start: 20110601, end: 20110601
  4. HUMIRA [Suspect]
     Indication: PSORIASIS
  5. HUMIRA [Suspect]
     Indication: PSORIATIC ARTHROPATHY

REACTIONS (11)
  - PURULENT DISCHARGE [None]
  - PUSTULAR PSORIASIS [None]
  - DRUG INEFFECTIVE [None]
  - DYSPNOEA [None]
  - SKIN SWELLING [None]
  - SKIN EXFOLIATION [None]
  - FURUNCLE [None]
  - CANDIDIASIS [None]
  - SUNBURN [None]
  - PRURITUS [None]
  - RASH [None]
